FAERS Safety Report 8963082 (Version 1)
Quarter: 2012Q4

REPORT INFORMATION
  Report Type: 
  Country: US (occurrence: US)
  Receive Date: 20121213
  Receipt Date: 20121213
  Transmission Date: 20130627
  Serious: No
  Sender: FDA-Public Use
  Company Number: US-PFIZER INC-2012313774

PATIENT
  Age: 63 Year
  Sex: Female
  Weight: 57.6 kg

DRUGS (5)
  1. LYRICA [Suspect]
     Indication: NERVE PAIN
     Dosage: 150 mg, 2x/day
     Dates: start: 201112, end: 20121207
  2. LABETALOL [Concomitant]
     Indication: BLOOD PRESSURE HIGH
     Dosage: 200 mg, 2x/day
  3. CITALOPRAM [Concomitant]
     Indication: DEPRESSION
     Dosage: 10 mg, 1x/day
  4. OXYCODONE [Concomitant]
     Dosage: 325 mg, 4x/day
  5. CARISOPRODOL [Concomitant]
     Dosage: 350 mg

REACTIONS (3)
  - Hot flush [Unknown]
  - Hyperhidrosis [Unknown]
  - Insomnia [Unknown]
